FAERS Safety Report 11089119 (Version 1)
Quarter: 2015Q2

REPORT INFORMATION
  Report Type: Report from Study
  Country: NL (occurrence: NL)
  Receive Date: 20150505
  Receipt Date: 20150505
  Transmission Date: 20150821
  Serious: Yes (Other)
  Sender: FDA-Public Use
  Company Number: NL-AMGEN-NLDSL2015042119

PATIENT
  Age: 56 Year
  Sex: Male

DRUGS (1)
  1. XGEVA [Suspect]
     Active Substance: DENOSUMAB
     Indication: PROPHYLAXIS
     Dosage: 1.7 ML,(70 MG/ML) Q4WK
     Route: 058
     Dates: start: 20150206, end: 20150428

REACTIONS (2)
  - Terminal state [Unknown]
  - General physical health deterioration [Unknown]
